FAERS Safety Report 17235097 (Version 1)
Quarter: 2020Q1

REPORT INFORMATION
  Report Type: Spontaneous
  Country: CN (occurrence: CN)
  Receive Date: 20200106
  Receipt Date: 20200106
  Transmission Date: 20200409
  Serious: Yes (Hospitalization, Other)
  Sender: FDA-Public Use
  Company Number: CN-009507513-2001CHN000844

PATIENT
  Age: 54 Year
  Sex: Male
  Weight: 60 kg

DRUGS (2)
  1. TIENAM [Suspect]
     Active Substance: CILASTATIN SODIUM\IMIPENEM
     Indication: PNEUMONIA
     Dosage: 1 GRAM, QD
     Dates: start: 20191202
  2. TIENAM [Suspect]
     Active Substance: CILASTATIN SODIUM\IMIPENEM
     Dosage: 0.5 GRAM, Q8H
     Dates: start: 20191204

REACTIONS (1)
  - Liver injury [Unknown]

NARRATIVE: CASE EVENT DATE: 201912
